FAERS Safety Report 8445420-3 (Version None)
Quarter: 2012Q2

REPORT INFORMATION
  Report Type: 
  Country: None (occurrence: None)
  Receive Date: 20120618
  Receipt Date: 20120611
  Transmission Date: 20120825
  Serious: Yes (Other)
  Sender: FDA-Public Use
  Company Number: GB-PFIZER INC-2012139687

PATIENT
  Age: 28 Year
  Sex: Male
  Weight: 63.5 kg

DRUGS (4)
  1. BECLOMETHASONE DIPROPIONATE [Concomitant]
     Dosage: UNK
     Dates: start: 20120118, end: 20120308
  2. DOXYCYCLINE HYCLATE [Suspect]
     Dosage: UNK
     Route: 048
     Dates: start: 20120529, end: 20120529
  3. ERYTHROMYCIN [Concomitant]
     Dosage: UNK
     Dates: start: 20120426
  4. DOXYCYCLINE HYCLATE [Suspect]
     Indication: ACNE
     Dosage: UNK
     Dates: start: 20120426

REACTIONS (3)
  - ERECTILE DYSFUNCTION [None]
  - LIBIDO DECREASED [None]
  - SEXUAL DYSFUNCTION [None]
